FAERS Safety Report 4660632-2 (Version None)
Quarter: 2005Q2

REPORT INFORMATION
  Report Type: 
  Country: None (occurrence: None)
  Receive Date: 20050512
  Receipt Date: 20050502
  Transmission Date: 20051028
  Serious: Yes (Death)
  Sender: FDA-Public Use
  Company Number: FR-BRISTOL-MYERS SQUIBB COMPANY-12953808

PATIENT
  Age: 52 Year
  Sex: Male

DRUGS (1)
  1. ELISOR TABS [Suspect]
     Indication: HYPERCHOLESTEROLAEMIA
     Dosage: ONE DOSE FORM = 1 TABLET
     Route: 048

REACTIONS (2)
  - ASPHYXIA [None]
  - VOMITING [None]
